FAERS Safety Report 24299810 (Version 1)
Quarter: 2024Q3

REPORT INFORMATION
  Report Type: Spontaneous
  Country: BG (occurrence: BG)
  Receive Date: 20240909
  Receipt Date: 20240909
  Transmission Date: 20241017
  Serious: Yes (Hospitalization, Other)
  Sender: ANI
  Company Number: BG-ANIPHARMA-2024-BG-000010

PATIENT
  Age: 48 Year
  Sex: Male

DRUGS (1)
  1. NEBIVOLOL HYDROCHLORIDE [Suspect]
     Active Substance: NEBIVOLOL HYDROCHLORIDE
     Indication: Hypertension
     Dosage: 5 MG / 1/4 IN THE MORNING ONCE DAILY

REACTIONS (1)
  - Lichen planus [Unknown]

NARRATIVE: CASE EVENT DATE: 20210101
